FAERS Safety Report 5191672-5 (Version None)
Quarter: 2006Q4

REPORT INFORMATION
  Report Type: 
  Country: None (occurrence: None)
  Receive Date: 20061219
  Receipt Date: 20061206
  Transmission Date: 20070319
  Serious: Yes (Other)
  Sender: FDA-Public Use
  Company Number: 2006152356

PATIENT
  Age: 59 Year
  Sex: Female
  Weight: 63.5036 kg

DRUGS (5)
  1. CHANTIX [Suspect]
     Indication: SMOKING CESSATION THERAPY
     Dosage: 2 MG (1 MG, 2 IN 1 D)
     Dates: start: 20061124
  2. ATENOLOL/HYDROCHLOROTHIAZIDE (ATENOLOL HYDROCHLOROTHIAZIDE) [Concomitant]
  3. GLIPIZIDE [Concomitant]
  4. METFORMIN HCL [Concomitant]
  5. ASPIRIN [Concomitant]

REACTIONS (9)
  - ABNORMAL DREAMS [None]
  - CONSTIPATION [None]
  - DIZZINESS [None]
  - FATIGUE [None]
  - FEELING ABNORMAL [None]
  - FLATULENCE [None]
  - GASTRIC DISORDER [None]
  - HYPERSOMNIA [None]
  - SOMNOLENCE [None]
